FAERS Safety Report 7279798-3 (Version None)
Quarter: 2010Q4

REPORT INFORMATION
  Report Type: 
  Country: None (occurrence: None)
  Receive Date: 20101206
  Receipt Date: 20100831
  Transmission Date: 20110411
  Serious: Yes (Other)
  Sender: FDA-Public Use
  Company Number: 2010SP047110

PATIENT
  Sex: Male

DRUGS (3)
  1. SAPHRIS [Suspect]
     Indication: SCHIZOAFFECTIVE DISORDER
     Dosage: 5 MG;BID;SL, 10 MG;BID;SL
     Route: 060
     Dates: start: 20100427, end: 20100519
  2. SAPHRIS [Suspect]
     Indication: SCHIZOAFFECTIVE DISORDER
     Dosage: 5 MG;BID;SL, 10 MG;BID;SL
     Route: 060
     Dates: start: 20100520, end: 20100525
  3. ZYPREXA [Concomitant]

REACTIONS (2)
  - DRUG HYPERSENSITIVITY [None]
  - PSYCHOTIC DISORDER [None]
